FAERS Safety Report 25037388 (Version 1)
Quarter: 2025Q1

REPORT INFORMATION
  Report Type: Spontaneous
  Country: DE (occurrence: DE)
  Receive Date: 20250304
  Receipt Date: 20250304
  Transmission Date: 20250408
  Serious: Yes (Hospitalization, Other)
  Sender: ALEXION PHARMACEUTICALS
  Company Number: DE-SANOFI-02425557

PATIENT

DRUGS (1)
  1. NIRSEVIMAB [Suspect]
     Active Substance: NIRSEVIMAB
     Dosage: UNK UNK, QD (1X)
     Route: 065

REACTIONS (3)
  - Respiratory syncytial virus infection [Unknown]
  - Pyrexia [Unknown]
  - Respiration abnormal [Unknown]
